FAERS Safety Report 4843476-8 (Version None)
Quarter: 2005Q4

REPORT INFORMATION
  Report Type: 
  Country: None (occurrence: None)
  Receive Date: 20051101
  Receipt Date: 20050510
  Transmission Date: 20060501
  Serious: Yes (Hospitalization)
  Sender: FDA-Public Use
  Company Number: DSA_26421_2005

PATIENT
  Age: 35 Year
  Sex: Female
  Weight: 127.0072 kg

DRUGS (10)
  1. ATIVAN [Suspect]
     Indication: ANXIETY
     Dosage: 15 MG ONCE PO
     Route: 048
     Dates: start: 20050501, end: 20050501
  2. ATIVAN [Suspect]
     Indication: ANXIETY
     Dosage: 0.5 MG PRN
  3. EFFEXOR XR [Suspect]
     Indication: ANXIETY
     Dosage: 150 MG
     Dates: start: 20050503, end: 20050504
  4. EFFEXOR XR [Suspect]
     Indication: DEPRESSION
     Dosage: 150 MG
     Dates: start: 20050503, end: 20050504
  5. EFFEXOR XR [Suspect]
     Indication: ANXIETY
     Dosage: 225 MG
     Dates: start: 20050505
  6. EFFEXOR XR [Suspect]
     Indication: DEPRESSION
     Dosage: 225 MG
     Dates: start: 20050505
  7. PREVACID [Concomitant]
  8. MULTIVITAMIN [Concomitant]
  9. VITAMIN B COMPLEX CAP [Concomitant]
  10. LASIX [Concomitant]

REACTIONS (14)
  - AGGRESSION [None]
  - AMNESIA [None]
  - ANGER [None]
  - ANXIETY [None]
  - ASTHENIA [None]
  - DIZZINESS [None]
  - DRUG WITHDRAWAL SYNDROME [None]
  - FEELING ABNORMAL [None]
  - HEADACHE [None]
  - HOSTILITY [None]
  - INSOMNIA [None]
  - INTENTIONAL DRUG MISUSE [None]
  - NERVOUSNESS [None]
  - SUICIDE ATTEMPT [None]
